FAERS Safety Report 5036375-2 (Version None)
Quarter: 2006Q2

REPORT INFORMATION
  Report Type: 
  Country: None (occurrence: None)
  Receive Date: 20060601
  Receipt Date: 20060419
  Transmission Date: 20061013
  Serious: No
  Sender: FDA-Public Use
  Company Number: US200604002966

PATIENT
  Age: 40 Year
  Sex: Female

DRUGS (2)
  1. CYMBALTA [Suspect]
     Indication: HEADACHE
     Dosage: 30 MG ; 60 MG, DAILY (1/D)
     Dates: start: 20060401
  2. ANALGESICS [Concomitant]

REACTIONS (4)
  - HEART RATE INCREASED [None]
  - MANIA [None]
  - SLEEP DISORDER [None]
  - THINKING ABNORMAL [None]
